FAERS Safety Report 4337238-8 (Version None)
Quarter: 2004Q2

REPORT INFORMATION
  Report Type: 
  Country: None (occurrence: None)
  Receive Date: 20040406
  Receipt Date: 20040213
  Transmission Date: 20050107
  Serious: Yes (Hospitalization)
  Sender: FDA-Public Use
  Company Number: 200412631BWH

PATIENT
  Age: 61 Year
  Sex: Male
  Weight: 98.8842 kg

DRUGS (1)
  1. CIPRO XR [Suspect]
     Dosage: 1000 MG, TOTAL DAILY, ORAL
     Route: 048
     Dates: start: 20040206

REACTIONS (5)
  - DRUG HYPERSENSITIVITY [None]
  - HYPOAESTHESIA [None]
  - HYPOTENSION [None]
  - PARAESTHESIA [None]
  - PULSE ABNORMAL [None]
